FAERS Safety Report 17203582 (Version 1)
Quarter: 2019Q4

REPORT INFORMATION
  Report Type: Spontaneous
  Country: CA (occurrence: CA)
  Receive Date: 20191226
  Receipt Date: 20191226
  Transmission Date: 20200122
  Serious: Yes (Death)
  Sender: FDA-Public Use
  Company Number: CA-TEVA-2019-CA-1156331

PATIENT
  Sex: Female

DRUGS (2)
  1. ALCOHOL. [Concomitant]
     Active Substance: ALCOHOL
  2. PREGABALIN. [Suspect]
     Active Substance: PREGABALIN
     Indication: PRODUCT USED FOR UNKNOWN INDICATION
     Route: 065

REACTIONS (8)
  - Abdominal distension [Fatal]
  - Off label use [Fatal]
  - Drug hypersensitivity [Fatal]
  - Respiratory failure [Fatal]
  - Dyspnoea [Fatal]
  - Swelling face [Fatal]
  - Cyanosis [Fatal]
  - Shock [Fatal]
